FAERS Safety Report 4685900-X (Version None)
Quarter: 2005Q2

REPORT INFORMATION
  Report Type: 
  Country: None (occurrence: None)
  Receive Date: 20050607
  Receipt Date: 20050607
  Transmission Date: 20051028
  Serious: Yes (Life-Threatening)
  Sender: FDA-Public Use
  Company Number: None

PATIENT
  Age: 33 Year
  Sex: Male
  Weight: 88.4514 kg

DRUGS (2)
  1. DURAGESIC-100 [Suspect]
     Indication: BACK PAIN
     Dosage: 1 PATCH     3 DAYS    TRANSDERMA
     Route: 062
     Dates: start: 20050315, end: 20050605
  2. FENTANYL [Suspect]
     Dosage: 1 PATCH    3 DAYS    TRANSDERMA
     Route: 062
     Dates: start: 20050605, end: 20050607

REACTIONS (4)
  - INCORRECT DOSE ADMINISTERED [None]
  - MEDICATION ERROR [None]
  - PAIN [None]
  - SUICIDAL IDEATION [None]
